FAERS Safety Report 6814985-7 (Version None)
Quarter: 2010Q3

REPORT INFORMATION
  Report Type: 
  Country: None (occurrence: None)
  Receive Date: 20100702
  Receipt Date: 20100623
  Transmission Date: 20110219
  Serious: Yes (Hospitalization)
  Sender: FDA-Public Use
  Company Number: JP-JNJFOC-20100604710

PATIENT
  Sex: Male

DRUGS (10)
  1. DORIPENEM MONOHYDRATE [Suspect]
     Indication: FEBRILE NEUTROPENIA
     Route: 041
  2. PREDNISOLONE [Concomitant]
     Indication: ERYTHEMA MULTIFORME
     Route: 048
  3. PREDNISOLONE [Concomitant]
     Route: 048
  4. ENDOXAN [Concomitant]
  5. COTRIM [Concomitant]
  6. ALLEGRA [Concomitant]
     Indication: ERYTHEMA MULTIFORME
     Route: 048
  7. BONALON [Concomitant]
     Route: 048
  8. TAKEPRON [Concomitant]
     Route: 048
  9. CRAVIT [Concomitant]
     Route: 048
  10. ITRIZOLE [Concomitant]
     Route: 048

REACTIONS (1)
  - ERYTHEMA MULTIFORME [None]
